FAERS Safety Report 8930390 (Version 1)
Quarter: 2012Q4

REPORT INFORMATION
  Report Type: 
  Country: FR (occurrence: FR)
  Receive Date: 20121128
  Receipt Date: 20121128
  Transmission Date: 20130627
  Serious: Yes (Hospitalization)
  Sender: FDA-Public Use
  Company Number: FR-GLAXOSMITHKLINE-B0847225A

PATIENT
  Age: 83 Year
  Sex: Female

DRUGS (12)
  1. DEROXAT [Suspect]
     Indication: PRODUCT USED FOR UNKNOWN INDICATION
     Dosage: 10MG per day
     Route: 048
     Dates: end: 20120831
  2. MICARDIS [Suspect]
     Indication: PRODUCT USED FOR UNKNOWN INDICATION
     Dosage: 80MG per day
     Route: 048
     Dates: end: 20120831
  3. LASILIX [Suspect]
     Indication: PRODUCT USED FOR UNKNOWN INDICATION
     Dosage: 80MG per day
     Route: 048
     Dates: end: 20120831
  4. ALDACTONE [Suspect]
     Indication: PRODUCT USED FOR UNKNOWN INDICATION
     Dosage: 25MG per day
     Route: 048
     Dates: end: 20120831
  5. DIAMICRON [Suspect]
     Indication: PRODUCT USED FOR UNKNOWN INDICATION
     Dosage: 120MG per day
     Route: 048
  6. LANTUS [Concomitant]
     Route: 065
  7. LEVOTHYROX [Concomitant]
     Route: 065
  8. ZYLORIC [Concomitant]
     Route: 065
  9. INEGY [Concomitant]
     Route: 065
  10. PARIET [Concomitant]
     Route: 065
  11. KALEORID [Concomitant]
     Route: 065
  12. TARDYFERON [Concomitant]
     Route: 065

REACTIONS (8)
  - Fall [Recovered/Resolved]
  - Hypoglycaemia [Recovered/Resolved]
  - Orthostatic hypotension [Recovered/Resolved]
  - Joint injury [Recovered/Resolved]
  - Disorientation [Unknown]
  - Dehydration [Unknown]
  - Blood pressure systolic increased [None]
  - Renal failure [None]
